FAERS Safety Report 9608286 (Version 1)
Quarter: 2013Q4

REPORT INFORMATION
  Report Type: Spontaneous
  Country: US (occurrence: US)
  Receive Date: 20131009
  Receipt Date: 20131009
  Transmission Date: 20140711
  Serious: Yes (Other)
  Sender: FDA-Public Use
  Company Number: US-PFIZER INC-2013285799

PATIENT
  Age: 51 Year
  Sex: Female
  Weight: 68.03 kg

DRUGS (3)
  1. CHANTIX [Suspect]
     Indication: SMOKING CESSATION THERAPY
     Dosage: 0.5 MG, 1X/DAY
     Route: 048
     Dates: start: 201307, end: 2013
  2. CHANTIX [Suspect]
     Dosage: 1 MG, 2X/DAY
     Route: 048
     Dates: start: 2013, end: 2013
  3. CHANTIX [Suspect]
     Dosage: 1 MG, 1X/DAY
     Route: 048
     Dates: start: 2013, end: 2013

REACTIONS (16)
  - Suicidal ideation [Unknown]
  - Drug withdrawal syndrome [Unknown]
  - Vomiting [Unknown]
  - Abdominal discomfort [Unknown]
  - Anger [Unknown]
  - Euphoric mood [Unknown]
  - Dizziness [Unknown]
  - Headache [Unknown]
  - Pollakiuria [Unknown]
  - Anxiety [Unknown]
  - Agitation [Unknown]
  - Aggression [Unknown]
  - Personality change [Unknown]
  - Feeling abnormal [Unknown]
  - Crying [Unknown]
  - Screaming [Unknown]
